FAERS Safety Report 4611721-X (Version None)
Quarter: 2005Q2

REPORT INFORMATION
  Report Type: 
  Country: None (occurrence: None)
  Receive Date: 20050311
  Receipt Date: 20041101
  Transmission Date: 20051028
  Serious: No
  Sender: FDA-Public Use
  Company Number: 2004-BP-10213BP

PATIENT
  Age: 77 Year
  Sex: Female
  Weight: 77.6 kg

DRUGS (9)
  1. SPIRIVA [Suspect]
     Indication: CHRONIC OBSTRUCTIVE PULMONARY DISEASE
     Dosage: 36 MCG (18 MCG, 2 PUFFS BID), IH
     Route: 055
     Dates: start: 20040907
  2. ............. [Concomitant]
  3. ADVAIR DISKUS 100/50 [Concomitant]
  4. SYNTHROID [Concomitant]
  5. MAVIK [Concomitant]
  6. NEXIUM [Concomitant]
  7. BEXTRA [Concomitant]
  8. TOPROL-XL [Concomitant]
  9. FEMARA [Concomitant]

REACTIONS (2)
  - BREATH SOUNDS DECREASED [None]
  - DRUG INEFFECTIVE [None]
